FAERS Safety Report 4757748-9 (Version None)
Quarter: 2005Q3

REPORT INFORMATION
  Report Type: 
  Country: None (occurrence: None)
  Receive Date: 20050831
  Receipt Date: 20050824
  Transmission Date: 20060218
  Serious: Yes (Other)
  Sender: FDA-Public Use
  Company Number: PHNU2005DE02954

PATIENT
  Sex: Male

DRUGS (3)
  1. ZOMETA [Suspect]
     Indication: METASTASES TO BONE
     Dosage: 4 MG, QMO
     Dates: start: 20041201
  2. ZOLADEX [Concomitant]
     Route: 065
  3. FLUTAMIDE [Concomitant]
     Route: 048

REACTIONS (3)
  - INFLAMMATION [None]
  - OSTEOMYELITIS [None]
  - WISDOM TEETH REMOVAL [None]
